FAERS Safety Report 19630762 (Version 2)
Quarter: 2021Q3

REPORT INFORMATION
  Report Type: Spontaneous
  Country: US (occurrence: US)
  Receive Date: 20210728
  Receipt Date: 20210804
  Transmission Date: 20211014
  Serious: No
  Sender: FDA-Public Use
  Company Number: US-SA-2021SA240585

PATIENT
  Age: 8 Year
  Sex: Female
  Weight: 22.68 kg

DRUGS (9)
  1. NORDITROPINE FLEXPRO [Concomitant]
     Dosage: NORDITROPIN FLEXPRO 15MG/1.5ML
     Route: 058
  2. DUPIXENT [Suspect]
     Active Substance: DUPILUMAB
     Indication: ASTHMA
     Dosage: 300 MG, QOW
     Route: 058
     Dates: end: 20210701
  3. CYPROHEPTADINE HCL [Concomitant]
     Active Substance: CYPROHEPTADINE HYDROCHLORIDE
     Dosage: UNK
  4. ALBUTEROL SULFATE HFA [Concomitant]
     Active Substance: ALBUTEROL SULFATE
  5. DEXBROMPHENIRAMINE;DEXTROMETHORPHAN;PSEUDOEPHEDRINE [Concomitant]
     Dosage: 15MG
  6. XYZAL [Concomitant]
     Active Substance: LEVOCETIRIZINE DIHYDROCHLORIDE
  7. DULERA [Concomitant]
     Active Substance: FORMOTEROL FUMARATE DIHYDRATE\MOMETASONE FUROATE
     Dosage: DULERA 200?5 MCG HFA AER AD
  8. BROMPHENIRAMINE [Concomitant]
     Active Substance: BROMPHENIRAMINE
  9. SPIRIVA RESPIMAT [Concomitant]
     Active Substance: TIOTROPIUM BROMIDE
     Dosage: UNK

REACTIONS (4)
  - Fear of injection [Unknown]
  - Product use issue [Unknown]
  - Drug ineffective [Unknown]
  - Injection site discomfort [Unknown]
